FAERS Safety Report 25938979 (Version 1)
Quarter: 2025Q4

REPORT INFORMATION
  Report Type: Report from Study
  Country: CA (occurrence: CA)
  Receive Date: 20251019
  Receipt Date: 20251019
  Transmission Date: 20260118
  Serious: Yes (Hospitalization)
  Sender: ABBVIE
  Company Number: CA-ABBVIE-6453161

PATIENT
  Sex: Female

DRUGS (1)
  1. SKYRIZI [Suspect]
     Active Substance: RISANKIZUMAB-RZAA
     Indication: Crohn^s disease
     Route: 058

REACTIONS (5)
  - Vomiting [Unknown]
  - Pain [Not Recovered/Not Resolved]
  - Obstruction [Not Recovered/Not Resolved]
  - Enteritis [Not Recovered/Not Resolved]
  - Crohn^s disease [Not Recovered/Not Resolved]
